FAERS Safety Report 5331371-X (Version None)
Quarter: 2007Q2

REPORT INFORMATION
  Report Type: 
  Country: None (occurrence: None)
  Receive Date: 20070522
  Receipt Date: 20070511
  Transmission Date: 20071010
  Serious: Yes (Hospitalization)
  Sender: FDA-Public Use
  Company Number: FR-SANOFI-SYNTHELABO-A02200701373

PATIENT
  Age: 81 Year
  Sex: Male
  Weight: 65 kg

DRUGS (6)
  1. BISOPROLOL FUMARATE [Suspect]
     Indication: ESSENTIAL HYPERTENSION
     Route: 048
  2. MEDIATENSYL [Suspect]
     Indication: ESSENTIAL HYPERTENSION
     Route: 048
  3. LORAZEPAM [Suspect]
     Indication: DRUG USE FOR UNKNOWN INDICATION
     Route: 048
     Dates: end: 20070326
  4. TRIATEC [Suspect]
     Indication: ESSENTIAL HYPERTENSION
     Route: 048
  5. PLAVIX [Suspect]
     Indication: ISCHAEMIC CARDIOMYOPATHY
     Route: 048
     Dates: start: 20070324
  6. PRIMPERAN INJ [Suspect]
     Indication: HICCUPS
     Route: 048
     Dates: start: 20070326, end: 20070327

REACTIONS (4)
  - APHASIA [None]
  - CONFUSIONAL STATE [None]
  - DISORIENTATION [None]
  - HYPONATRAEMIA [None]
